FAERS Safety Report 6420666-4 (Version None)
Quarter: 2009Q4

REPORT INFORMATION
  Report Type: 
  Country: None (occurrence: None)
  Receive Date: 20091027
  Receipt Date: 20060522
  Transmission Date: 20100525
  Serious: Yes (Hospitalization)
  Sender: FDA-Public Use
  Company Number: 2009011657

PATIENT
  Age: 46 Year
  Sex: Female
  Weight: 112.4921 kg

DRUGS (5)
  1. ACTIQ [Suspect]
     Indication: NEURALGIA
     Dosage: 2400 MCG (800 MCG, 3 IN 1 D), BU
     Route: 002
     Dates: start: 20040101
  2. AVINZA [Concomitant]
  3. SOMA [Concomitant]
  4. WELLBUTRIN [Concomitant]
  5. PROZAC [Concomitant]

REACTIONS (7)
  - CONTUSION [None]
  - DIARRHOEA [None]
  - FALL [None]
  - GASTROENTERITIS [None]
  - MASS [None]
  - NAUSEA [None]
  - VOMITING [None]
